FAERS Safety Report 11514104 (Version 1)
Quarter: 2015Q3

REPORT INFORMATION
  Report Type: Spontaneous
  Country: FR (occurrence: FR)
  Receive Date: 20150916
  Receipt Date: 20150916
  Transmission Date: 20151125
  Serious: Yes (Death, Hospitalization, Other)
  Sender: FDA-Public Use
  Company Number: FR-BRISTOL-MYERS SQUIBB COMPANY-BMS-2015-061673

PATIENT
  Age: 94 Year
  Sex: Male

DRUGS (1)
  1. COUMADINE [Suspect]
     Active Substance: WARFARIN SODIUM
     Indication: CORONARY ARTERY DISEASE
     Dosage: 2 MG, UNK
     Route: 048

REACTIONS (8)
  - Off label use [Unknown]
  - Head injury [Unknown]
  - Subdural haematoma [Fatal]
  - Fall [Unknown]
  - Respiratory distress [Unknown]
  - Malaise [Unknown]
  - Loss of consciousness [Unknown]
  - Cyanosis [Unknown]

NARRATIVE: CASE EVENT DATE: 20150820
